FAERS Safety Report 5100763-6 (Version None)
Quarter: 2006Q3

REPORT INFORMATION
  Report Type: 
  Country: None (occurrence: None)
  Receive Date: 20060906
  Receipt Date: 20060826
  Transmission Date: 20061208
  Serious: Yes (Other)
  Sender: FDA-Public Use
  Company Number: 14682

PATIENT
  Age: 48 Year
  Sex: Male

DRUGS (3)
  1. DACARBAZINE [Suspect]
     Indication: METASTATIC MALIGNANT MELANOMA
  2. VINBLASTINE [Suspect]
     Indication: METASTATIC MALIGNANT MELANOMA
  3. INTERFERON-ALPHA [Suspect]
     Indication: METASTATIC MALIGNANT MELANOMA

REACTIONS (4)
  - CONDITION AGGRAVATED [None]
  - DISEASE RECURRENCE [None]
  - METASTATIC NEOPLASM [None]
  - VITILIGO [None]
